FAERS Safety Report 8323552 (Version 2)
Quarter: 2013Q3

REPORT INFORMATION
  Report Type: Spontaneous
  Country: US (occurrence: US)
  Receive Date: 20120105
  Receipt Date: 20130725
  Transmission Date: 20140515
  Serious: No
  Sender: FDA-Public Use
  Company Number: US-ABBOTT-11P-163-0713137-00

PATIENT
  Age: 48 Year
  Sex: Male
  Weight: 68.1 kg

DRUGS (3)
  1. SYNTHROID [Suspect]
     Indication: HYPOTHYROIDISM
     Dates: start: 2007
  2. SYNTHROID [Suspect]
     Indication: HYPOTHYROIDISM
     Dates: start: 2007
  3. PRAVASTATIN [Concomitant]
     Indication: BLOOD CHOLESTEROL INCREASED

REACTIONS (2)
  - Blood glucose increased [Not Recovered/Not Resolved]
  - Glucose tolerance impaired [Unknown]
